FAERS Safety Report 9059811 (Version 4)
Quarter: 2013Q2

REPORT INFORMATION
  Report Type: Spontaneous
  Country: FI (occurrence: FI)
  Receive Date: 20130212
  Receipt Date: 20130424
  Transmission Date: 20140414
  Serious: Yes (Hospitalization, Other)
  Sender: FDA-Public Use
  Company Number: FI-ELI_LILLY_AND_COMPANY-FI201302000010

PATIENT
  Sex: Female

DRUGS (2)
  1. ZYPADHERA [Suspect]
     Dosage: 300 MG, 2/M
     Route: 030
     Dates: start: 201112, end: 20130110
  2. ASASANTIN [Concomitant]

REACTIONS (6)
  - Cerebral infarction [Recovered/Resolved]
  - Cerebral infarction [Unknown]
  - Blood cholesterol increased [Unknown]
  - Psychotic disorder [Unknown]
  - Electrocardiogram abnormal [Unknown]
  - Blood pressure increased [Unknown]
